FAERS Safety Report 4961007-9 (Version None)
Quarter: 2006Q1

REPORT INFORMATION
  Report Type: 
  Country: None (occurrence: None)
  Receive Date: 20060328
  Receipt Date: 20060314
  Transmission Date: 20060701
  Serious: Yes (Hospitalization)
  Sender: FDA-Public Use
  Company Number: 02100-JPN-06-0038

PATIENT
  Age: 72 Year
  Sex: Male

DRUGS (11)
  1. CILOSTAZOL [Suspect]
     Indication: ARTERIOSCLEROSIS OBLITERANS
     Dosage: 200  MG ORAL
     Route: 048
     Dates: start: 20060126, end: 20060129
  2. CILOSTAZOL [Suspect]
     Indication: DIABETIC GANGRENE
     Dosage: 200  MG ORAL
     Route: 048
     Dates: start: 20060126, end: 20060129
  3. EPALRESTAT [Concomitant]
  4. CARBAMAZEPINE [Concomitant]
  5. HUMAN INSULIN (GENETICAL RECOMBINATION) [Concomitant]
  6. CEFACLOR [Concomitant]
  7. ACETAMINOPHEN [Concomitant]
  8. CHLORPHENIRAMINE MALEATE [Concomitant]
  9. SULPYRINE [Concomitant]
  10. CAFFEINE [Concomitant]
  11. ALUMINIUM HYDROXIDE GEL, DRIED [Concomitant]

REACTIONS (7)
  - CARDIAC FAILURE [None]
  - CARDIOMEGALY [None]
  - DECREASED APPETITE [None]
  - NAUSEA [None]
  - NEPHROTIC SYNDROME [None]
  - ORAL INTAKE REDUCED [None]
  - PLEURAL EFFUSION [None]
